FAERS Safety Report 7569291-2 (Version None)
Quarter: 2011Q2

REPORT INFORMATION
  Report Type: 
  Country: None (occurrence: None)
  Receive Date: 20110623
  Receipt Date: 20110614
  Transmission Date: 20111010
  Serious: No
  Sender: FDA-Public Use
  Company Number: BR-ASTRAZENECA-2010SE59544

PATIENT
  Age: 57 Year
  Sex: Female
  Weight: 73 kg

DRUGS (1)
  1. ATACAND HCT [Suspect]
     Indication: HYPERTENSION
     Dosage: 16/12.5MG DAILY
     Route: 048
     Dates: start: 20050101

REACTIONS (2)
  - VAGINAL HAEMORRHAGE [None]
  - HYPERCHOLESTEROLAEMIA [None]
